FAERS Safety Report 6252738-1 (Version None)
Quarter: 2009Q2

REPORT INFORMATION
  Report Type: 
  Country: None (occurrence: None)
  Receive Date: 20090629
  Receipt Date: 20090629
  Transmission Date: 20091009
  Serious: No
  Sender: FDA-Public Use
  Company Number: None

PATIENT
  Sex: Female
  Weight: 68.0396 kg

DRUGS (1)
  1. ZICAM [Suspect]
     Indication: SINUS DISORDER
     Dosage: NOSE SWAB 3-4 DAILY WHEN USE
     Dates: start: 20050101, end: 20090601

REACTIONS (1)
  - HYPOSMIA [None]
